FAERS Safety Report 9777943 (Version 2)
Quarter: 2013Q4

REPORT INFORMATION
  Report Type: Spontaneous
  Country: IT (occurrence: IT)
  Receive Date: 20131223
  Receipt Date: 20131223
  Transmission Date: 20140711
  Serious: Yes (Other)
  Sender: FDA-Public Use
  Company Number: IT-BRISTOL-MYERS SQUIBB COMPANY-19592518

PATIENT
  Age: 58 Year
  Sex: Female

DRUGS (2)
  1. PACLITAXEL [Suspect]
     Indication: OVARIAN CANCER
     Dosage: DOSSAGE300MG:21-AUG-2013 TO O9-DEC-2013
     Route: 042
     Dates: start: 20130821, end: 20131007
  2. CARBOPLATINE TEVA [Suspect]
     Indication: OVARIAN CANCER
     Dosage: TEVA 1 VIAL 600MG/60ML?600MG6OML FROM 21-AUG-2013 TO 09-DEC-2013
     Route: 042
     Dates: start: 20130821

REACTIONS (3)
  - Anaemia [Recovered/Resolved]
  - Neutropenia [Recovering/Resolving]
  - Leukopenia [Recovering/Resolving]
